FAERS Safety Report 6253484-0 (Version None)
Quarter: 2009Q2

REPORT INFORMATION
  Report Type: 
  Country: None (occurrence: None)
  Receive Date: 20090629
  Receipt Date: 20090629
  Transmission Date: 20091009
  Serious: Yes (Other)
  Sender: FDA-Public Use
  Company Number: None

PATIENT
  Age: 40 Month
  Sex: Female
  Weight: 17.2367 kg

DRUGS (2)
  1. SINGULAIR [Suspect]
     Indication: ASTHMA
     Dosage: 2 MG QD PO
     Route: 048
     Dates: start: 20090520, end: 20090621
  2. SINGULAIR [Suspect]
     Indication: MULTIPLE ALLERGIES
     Dosage: 2 MG QD PO
     Route: 048
     Dates: start: 20090520, end: 20090621

REACTIONS (6)
  - ABDOMINAL DISCOMFORT [None]
  - AGGRESSION [None]
  - IRRITABILITY [None]
  - MUSCLE SPASMS [None]
  - PSYCHOMOTOR HYPERACTIVITY [None]
  - RESTLESSNESS [None]
